FAERS Safety Report 6674044-3 (Version None)
Quarter: 2010Q2

REPORT INFORMATION
  Report Type: 
  Country: None (occurrence: None)
  Receive Date: 20100409
  Receipt Date: 20100405
  Transmission Date: 20101027
  Serious: Yes (Other)
  Sender: FDA-Public Use
  Company Number: KR-ELI_LILLY_AND_COMPANY-KR201004000666

PATIENT
  Sex: Female
  Weight: 77 kg

DRUGS (2)
  1. BYETTA [Suspect]
     Indication: TYPE 2 DIABETES MELLITUS
     Dosage: 5 UG, 2/D
     Route: 058
     Dates: start: 20100222, end: 20100322
  2. BYETTA [Suspect]
     Dosage: 10 UG, 2/D
     Route: 058
     Dates: start: 20100322

REACTIONS (5)
  - BLINDNESS UNILATERAL [None]
  - DIZZINESS [None]
  - NAUSEA [None]
  - RETINOPATHY [None]
  - VOMITING [None]
